FAERS Safety Report 12631342 (Version 2)
Quarter: 2016Q3

REPORT INFORMATION
  Report Type: Spontaneous
  Country: US (occurrence: US)
  Receive Date: 20160808
  Receipt Date: 20160808
  Transmission Date: 20161109
  Serious: No
  Sender: FDA-Public Use
  Company Number: US-BEH-2015053426

PATIENT
  Sex: Female
  Weight: 80 kg

DRUGS (31)
  1. LACTOBACILLUS ACIDOPHILUS\LACTOBACILLUS BULGARICUS [Concomitant]
     Active Substance: LACTOBACILLUS ACIDOPHILUS\LACTOBACILLUS DELBRUECKII SUBSP. BULGARICUS
  2. CLOBETASOL [Concomitant]
     Active Substance: CLOBETASOL
  3. ALIGN [Concomitant]
     Active Substance: BIFIDOBACTERIUM LONGUM SUBSP. INFANTIS
  4. HIZENTRA [Suspect]
     Active Substance: HUMAN IMMUNOGLOBULIN G
     Indication: ASTHMA
     Route: 058
  5. FINASTERIDE. [Concomitant]
     Active Substance: FINASTERIDE
  6. VITAMIN B [Concomitant]
     Active Substance: VITAMIN B
  7. HIZENTRA [Suspect]
     Active Substance: HUMAN IMMUNOGLOBULIN G
     Indication: GASTROOESOPHAGEAL REFLUX DISEASE
     Route: 058
  8. LEVOFLOXACIN. [Concomitant]
     Active Substance: LEVOFLOXACIN
  9. BIOTIN [Concomitant]
     Active Substance: BIOTIN
  10. LIPITOR [Concomitant]
     Active Substance: ATORVASTATIN CALCIUM
  11. FIRST TESTOSTERONE [Concomitant]
  12. DAIRY DIGESTIVE AID [Concomitant]
  13. MULTIVITAMIN [Concomitant]
     Active Substance: VITAMINS
  14. PROVENTIL [Concomitant]
     Active Substance: ALBUTEROL
  15. FLUOROMETHOLONE. [Concomitant]
     Active Substance: FLUOROMETHOLONE
  16. SUDAFED [Concomitant]
     Active Substance: PSEUDOEPHEDRINE HYDROCHLORIDE
  17. HIZENTRA [Suspect]
     Active Substance: HUMAN IMMUNOGLOBULIN G
     Indication: IMMUNODEFICIENCY COMMON VARIABLE
     Route: 058
  18. VITAMIN D [Concomitant]
     Active Substance: CHOLECALCIFEROL
  19. ANUSOL NOS [Concomitant]
     Active Substance: BALSAM PERU\BENZYL BENZOATE\BISMUTH HYDROXIDE\BISMUTH SUBGALLATE\HYDROCORTISONE ACETATE\ZINC OXIDE
  20. METRONIDAZOLE. [Concomitant]
     Active Substance: METRONIDAZOLE
  21. ACTOS [Concomitant]
     Active Substance: PIOGLITAZONE HYDROCHLORIDE
  22. RANITIDINE. [Concomitant]
     Active Substance: RANITIDINE
  23. IPRATROPIUM ALBUTEROL [Concomitant]
     Active Substance: ALBUTEROL\IPRATROPIUM
  24. AMLODIPINE BESYLATE. [Concomitant]
     Active Substance: AMLODIPINE BESYLATE
  25. AMBIEN [Concomitant]
     Active Substance: ZOLPIDEM TARTRATE
  26. HIZENTRA [Suspect]
     Active Substance: HUMAN IMMUNOGLOBULIN G
     Indication: TYPE 2 DIABETES MELLITUS
     Route: 058
  27. FLUCONAZOLE. [Concomitant]
     Active Substance: FLUCONAZOLE
  28. FEXOFENADINE [Concomitant]
     Active Substance: FEXOFENADINE\FEXOFENADINE HYDROCHLORIDE
  29. MAPAP [Concomitant]
     Active Substance: ACETAMINOPHEN
  30. NIACIN. [Concomitant]
     Active Substance: NIACIN
  31. DESONIDE. [Concomitant]
     Active Substance: DESONIDE

REACTIONS (1)
  - Infusion site erythema [Unknown]
